FAERS Safety Report 6698558-5 (Version None)
Quarter: 2010Q2

REPORT INFORMATION
  Report Type: 
  Country: None (occurrence: None)
  Receive Date: 20100427
  Receipt Date: 20100423
  Transmission Date: 20101027
  Serious: Yes (Hospitalization, Disabling, Other)
  Sender: FDA-Public Use
  Company Number: BE-BAYER-201022880GPV

PATIENT
  Age: 83 Year
  Sex: Male
  Weight: 60 kg

DRUGS (5)
  1. NEXAVAR [Suspect]
     Indication: METASTATIC RENAL CELL CARCINOMA
     Dates: start: 20090916, end: 20091019
  2. NEXAVAR [Suspect]
     Dates: start: 20091020, end: 20091025
  3. VOLTAREN [Concomitant]
     Dates: start: 20090901, end: 20091028
  4. CONTRAMAL [Concomitant]
     Dates: start: 20091019, end: 20091027
  5. PAROXETINE HCL [Concomitant]
     Dates: start: 20091019, end: 20091024

REACTIONS (4)
  - ASTHENIA [None]
  - BRAIN COMPRESSION [None]
  - DIARRHOEA [None]
  - GENERAL PHYSICAL HEALTH DETERIORATION [None]
